FAERS Safety Report 17442293 (Version 1)
Quarter: 2020Q1

REPORT INFORMATION
  Report Type: Spontaneous
  Country: US (occurrence: US)
  Receive Date: 20200220
  Receipt Date: 20200220
  Transmission Date: 20200409
  Serious: Yes (Death, Other)
  Sender: FDA-Public Use
  Company Number: US-NAPPMUNDI-USA-2020-0150006

PATIENT
  Age: 36 Year
  Sex: Male

DRUGS (1)
  1. OXYCODONE HYDROCHLORIDE (SIMILAR TO NDA 22-272) [Suspect]
     Active Substance: OXYCODONE HYDROCHLORIDE
     Indication: PRODUCT USED FOR UNKNOWN INDICATION
     Dosage: UNK
     Route: 048
     Dates: start: 201712

REACTIONS (5)
  - Unresponsive to stimuli [Unknown]
  - Pneumonia [Not Recovered/Not Resolved]
  - Pre-existing disease [Not Recovered/Not Resolved]
  - Toxicity to various agents [Fatal]
  - Body temperature increased [Unknown]

NARRATIVE: CASE EVENT DATE: 201712
